FAERS Safety Report 7299132-2 (Version None)
Quarter: 2011Q1

REPORT INFORMATION
  Report Type: 
  Country: None (occurrence: None)
  Receive Date: 20110217
  Receipt Date: 20110209
  Transmission Date: 20110831
  Serious: Yes (Life-Threatening, Hospitalization)
  Sender: FDA-Public Use
  Company Number: GB-BRACCO-000346

PATIENT
  Age: 72 Year
  Sex: Female

DRUGS (8)
  1. DIHYDROCODEINE BITARTRATE INJ [Concomitant]
  2. QUININE SULFATE [Concomitant]
  3. METOPROLOL TARTRATE [Concomitant]
  4. LANSOPRAZOLE [Concomitant]
  5. ASPIRIN [Concomitant]
  6. LISINOPRIL [Concomitant]
  7. MULTIHANCE [Suspect]
     Indication: NUCLEAR MAGNETIC RESONANCE IMAGING
     Dosage: DOSE: 0.5M
     Route: 042
     Dates: start: 20110202, end: 20110202
  8. ATORVASTATIN [Concomitant]

REACTIONS (2)
  - ANAPHYLACTIC REACTION [None]
  - CARDIAC ARREST [None]
